FAERS Safety Report 10193102 (Version 1)
Quarter: 2014Q2

REPORT INFORMATION
  Report Type: Spontaneous
  Country: US (occurrence: US)
  Receive Date: 20140524
  Receipt Date: 20140524
  Transmission Date: 20141212
  Serious: No
  Sender: FDA-Public Use
  Company Number: US-SANOFI-AVENTIS-2013SA040000

PATIENT
  Age: 66 Year
  Sex: Female

DRUGS (3)
  1. SOLOSTAR [Suspect]
     Indication: TYPE 2 DIABETES MELLITUS
     Dosage: START DATE: 1+YEARS
  2. LANTUS SOLOSTAR [Suspect]
     Indication: TYPE 2 DIABETES MELLITUS
     Dosage: START DATE: 1+YEARS?DOSE AND FREQUENCY: 30 U AM/30 PM DOSE:30 UNIT(S)
     Route: 051
  3. HUMALOG [Concomitant]

REACTIONS (3)
  - Blood glucose increased [Unknown]
  - Visual acuity reduced [Unknown]
  - Gait disturbance [Unknown]
